FAERS Safety Report 8580377-6 (Version None)
Quarter: 2012Q3

REPORT INFORMATION
  Report Type: 
  Country: None (occurrence: None)
  Receive Date: 20120808
  Receipt Date: 20120803
  Transmission Date: 20120928
  Serious: Yes (Other)
  Sender: FDA-Public Use
  Company Number: US-ABBOTT-12P-163-0957717-00

PATIENT
  Sex: Female
  Weight: 77.18 kg

DRUGS (7)
  1. SYNTHROID [Concomitant]
     Indication: HYPOTHYROIDISM
  2. LIPITOR [Concomitant]
     Indication: BLOOD CHOLESTEROL INCREASED
  3. ASPIRIN [Concomitant]
     Indication: PRODUCT USED FOR UNKNOWN INDICATION
  4. GLUCOSAMINE [Concomitant]
     Indication: ARTHROPATHY
  5. HUMIRA [Suspect]
     Indication: PSORIASIS
     Route: 058
     Dates: start: 20101001
  6. HUMIRA [Suspect]
     Indication: RHEUMATOID ARTHRITIS
  7. LOTREL [Concomitant]
     Indication: HYPERTENSION
     Dosage: 10/40MG

REACTIONS (1)
  - VISUAL IMPAIRMENT [None]
